FAERS Safety Report 8146510-5 (Version None)
Quarter: 2012Q1

REPORT INFORMATION
  Report Type: 
  Country: None (occurrence: None)
  Receive Date: 20120217
  Receipt Date: 20120207
  Transmission Date: 20120608
  Serious: Yes (Life-Threatening, Hospitalization)
  Sender: FDA-Public Use
  Company Number: ES-ROCHE-1017538

PATIENT
  Sex: Female

DRUGS (8)
  1. INSULIN [Concomitant]
     Indication: DIABETES MELLITUS
     Route: 058
     Dates: end: 20111125
  2. TARCEVA [Suspect]
     Indication: PANCREATIC CARCINOMA
     Dosage: LAST DOSE PRIOR TO SAE: 13/NOV/2011
     Route: 048
     Dates: start: 20111031
  3. MINOCYCLINE HCL [Concomitant]
     Indication: PARONYCHIA
     Dates: start: 20111024, end: 20111125
  4. ATORVASTATIN [Concomitant]
     Dates: start: 20111010, end: 20111125
  5. XELODA [Suspect]
     Indication: PANCREATIC CARCINOMA
     Dosage: DATE OF LAST DOSE PRIOR TO SAE: 13/NOV/2011
     Route: 048
     Dates: start: 20111031
  6. GEMCITABINE HYDROCHLORIDE [Suspect]
     Indication: PANCREATIC CARCINOMA
     Dosage: LAST DOSE PRIOR TO SAE: 7/NOV/2011
     Route: 042
     Dates: start: 20111031
  7. ASPIRIN [Concomitant]
     Dates: start: 20111001, end: 20111125
  8. GENTAMICIN [Concomitant]
     Indication: PARONYCHIA
     Dates: start: 20111024, end: 20111125

REACTIONS (8)
  - PERIPHERAL ISCHAEMIA [None]
  - DIARRHOEA [None]
  - HEPATIC LESION [None]
  - LIMB AMPUTATION [None]
  - CLOSTRIDIUM TEST POSITIVE [None]
  - PANCREATIC CARCINOMA [None]
  - NEOPLASM PROGRESSION [None]
  - PARANEOPLASTIC SYNDROME [None]
